FAERS Safety Report 17549952 (Version 1)
Quarter: 2020Q1

REPORT INFORMATION
  Report Type: Spontaneous
  Country: US (occurrence: US)
  Receive Date: 20200311
  Receipt Date: 20200311
  Transmission Date: 20200409
  Serious: Yes (Death)
  Sender: FDA-Public Use
  Company Number: None

PATIENT
  Age: 66 Year
  Weight: 104 kg

DRUGS (1)
  1. HEPARIN [Suspect]
     Active Substance: HEPARIN SODIUM

REACTIONS (6)
  - Therapeutic response decreased [None]
  - Drug ineffective [None]
  - Vascular stent thrombosis [None]
  - Cardiac arrest [None]
  - Cardiac procedure complication [None]
  - Coagulation time [None]
